FAERS Safety Report 10986100 (Version 1)
Quarter: 2015Q1

REPORT INFORMATION
  Report Type: Spontaneous
  Country: US (occurrence: None)
  Receive Date: 20150313
  Receipt Date: 20150313
  Transmission Date: 20150721
  Serious: Yes (Other)
  Sender: FDA-Public Use
  Company Number: 1476788

PATIENT
  Age: 54 Year
  Sex: Male
  Weight: 88.91 kg

DRUGS (5)
  1. ALPRAZOLAM. [Concomitant]
     Active Substance: ALPRAZOLAM
  2. FLONASE [Concomitant]
     Active Substance: FLUTICASONE PROPIONATE
  3. XOLAIR [Suspect]
     Active Substance: OMALIZUMAB
     Indication: ASTHMA
     Dosage: 300 MG, 1 IN 2 WK, SUBCUTANEOUS
     Route: 058
     Dates: start: 20101021
  4. PROTONIX (UNITED STATES) (PANTOPRAZOLE SODIUM) [Concomitant]
  5. SYMBICORT [Concomitant]
     Active Substance: BUDESONIDE\FORMOTEROL FUMARATE DIHYDRATE

REACTIONS (1)
  - Renal cell carcinoma [None]

NARRATIVE: CASE EVENT DATE: 20140820
